FAERS Safety Report 25316897 (Version 5)
Quarter: 2025Q3

REPORT INFORMATION
  Report Type: Spontaneous
  Country: US (occurrence: US)
  Receive Date: 20250515
  Receipt Date: 20250912
  Transmission Date: 20251020
  Serious: Yes (Hospitalization)
  Sender: SYNDAX
  Company Number: US-SYNDAX PHARMACEUTICALS, INC.-2025US000426

PATIENT
  Sex: Female
  Weight: 20.998 kg

DRUGS (4)
  1. REVUFORJ [Suspect]
     Active Substance: REVUMENIB CITRATE
     Indication: Acute myeloid leukaemia
     Dosage: 75 MILLIGRAM, BID
     Route: 048
     Dates: start: 20250306, end: 20250531
  2. REVUFORJ [Suspect]
     Active Substance: REVUMENIB CITRATE
     Dosage: 50 MILLIGRAM, BID
     Route: 048
  3. VENCLEXTA [Concomitant]
     Active Substance: VENETOCLAX
     Indication: Product used for unknown indication
     Route: 065
  4. VIDAZA [Concomitant]
     Active Substance: AZACITIDINE
     Indication: Product used for unknown indication
     Route: 065

REACTIONS (6)
  - Petechiae [Unknown]
  - Pyrexia [Unknown]
  - Nausea [Unknown]
  - Mood altered [Unknown]
  - Drug ineffective [Unknown]
  - Disease progression [Unknown]
